FAERS Safety Report 16207603 (Version 1)
Quarter: 2019Q2

REPORT INFORMATION
  Report Type: Spontaneous
  Country: US (occurrence: US)
  Receive Date: 20190417
  Receipt Date: 20190417
  Transmission Date: 20190711
  Serious: No
  Sender: FDA-Public Use
  Company Number: US-PFIZER INC-2019160634

PATIENT
  Age: 53 Year
  Sex: Female

DRUGS (1)
  1. XALKORI [Suspect]
     Active Substance: CRIZOTINIB
     Indication: RECTAL CANCER
     Dosage: 200 MG, UNK

REACTIONS (1)
  - Drug ineffective for unapproved indication [Unknown]
